FAERS Safety Report 14639425 (Version 1)
Quarter: 2018Q1

REPORT INFORMATION
  Report Type: Spontaneous
  Country: FR (occurrence: FR)
  Receive Date: 20180315
  Receipt Date: 20180315
  Transmission Date: 20180509
  Serious: Yes (Hospitalization)
  Sender: FDA-Public Use
  Company Number: FR-MERCK KGAA-2043779

PATIENT
  Sex: Female

DRUGS (1)
  1. NOVOTHYROX [Suspect]
     Active Substance: LEVOTHYROXINE SODIUM
     Indication: PRODUCT USED FOR UNKNOWN INDICATION

REACTIONS (17)
  - Muscle spasms [None]
  - Dyspnoea exertional [None]
  - Gait disturbance [None]
  - Loss of personal independence in daily activities [None]
  - Dizziness [None]
  - Fatigue [None]
  - Dry mouth [None]
  - Gastrointestinal disorder [None]
  - Nausea [None]
  - Fall [None]
  - Balance disorder [None]
  - Depression [None]
  - Crying [None]
  - Depressed mood [None]
  - Tremor [None]
  - Anxiety [None]
  - Swelling [None]
